FAERS Safety Report 8250120-9 (Version None)
Quarter: 2012Q2

REPORT INFORMATION
  Report Type: 
  Country: None (occurrence: None)
  Receive Date: 20120402
  Receipt Date: 20120327
  Transmission Date: 20120825
  Serious: Yes (Hospitalization)
  Sender: FDA-Public Use
  Company Number: KR-BAYER-2012-029803

PATIENT
  Age: 67 Year
  Sex: Female
  Weight: 52 kg

DRUGS (6)
  1. CISPLATIN [Suspect]
     Indication: GASTRIC CANCER
     Dosage: 60 MG/M2
     Dates: start: 20120107, end: 20120107
  2. SORAFENIB (RAF KINASE INHIBITOR) [Suspect]
     Dosage: DAILY DOSE 800 MG
     Dates: start: 20120305, end: 20120326
  3. SORAFENIB (RAF KINASE INHIBITOR) [Suspect]
     Indication: GASTRIC CANCER
     Dosage: 400 MG
     Dates: start: 20120107
  4. CAPECITABINE [Suspect]
     Dosage: 1200 MG/M2, QD
     Dates: start: 20120305, end: 20120319
  5. CAPECITABINE [Suspect]
     Indication: GASTRIC CANCER
     Dosage: 800 MG/M2
     Dates: start: 20120107
  6. CISPLATIN [Suspect]
     Dosage: 60 MG/M2, QD
     Dates: start: 20120305, end: 20120305

REACTIONS (1)
  - VENA CAVA THROMBOSIS [None]
